FAERS Safety Report 4979395-6 (Version None)
Quarter: 2006Q2

REPORT INFORMATION
  Report Type: 
  Country: None (occurrence: None)
  Receive Date: 20060421
  Receipt Date: 20051123
  Transmission Date: 20061013
  Serious: Yes (Hospitalization)
  Sender: FDA-Public Use
  Company Number: US-MERCK-0511USA04008

PATIENT
  Age: 66 Year
  Sex: Male
  Weight: 118 kg

DRUGS (11)
  1. VIOXX [Suspect]
     Indication: MONARTHRITIS
     Route: 048
     Dates: start: 20000101, end: 20040901
  2. VIOXX [Suspect]
     Route: 048
     Dates: start: 20000101, end: 20040901
  3. DIOVAN [Concomitant]
     Indication: HYPERTENSION
     Route: 065
     Dates: start: 20030122
  4. ZOCOR [Concomitant]
     Indication: BLOOD CHOLESTEROL INCREASED
     Route: 065
     Dates: start: 20030222, end: 20030401
  5. LIPITOR [Concomitant]
     Indication: BLOOD CHOLESTEROL INCREASED
     Route: 065
     Dates: start: 20030422
  6. IBUPROFEN [Concomitant]
     Indication: HEADACHE
     Route: 065
  7. PREDNISONE [Concomitant]
     Route: 065
  8. ERYTHROMYCIN [Concomitant]
     Route: 065
  9. BENZONATATE [Concomitant]
     Route: 065
  10. TEQUIN [Concomitant]
     Route: 065
  11. AVELOX [Concomitant]
     Route: 065

REACTIONS (14)
  - ANGINA UNSTABLE [None]
  - ATELECTASIS [None]
  - BLOOD CHOLESTEROL INCREASED [None]
  - BLOOD CREATININE INCREASED [None]
  - BLOOD UREA INCREASED [None]
  - CARDIOMEGALY [None]
  - CELLULITIS [None]
  - CORONARY ARTERY DISEASE [None]
  - DIABETES MELLITUS [None]
  - DIVERTICULUM INTESTINAL [None]
  - HYPERTENSION [None]
  - JOINT INJURY [None]
  - KNEE ARTHROPLASTY [None]
  - MYOCARDIAL INFARCTION [None]
